FAERS Safety Report 20233396 (Version 2)
Quarter: 2022Q1

REPORT INFORMATION
  Report Type: Report from Study
  Country: FR (occurrence: FR)
  Receive Date: 20211227
  Receipt Date: 20220128
  Transmission Date: 20220423
  Serious: Yes (Death, Hospitalization, Other)
  Sender: FDA-Public Use
  Company Number: FR-GLAXOSMITHKLINE-FR2020EME219377

PATIENT
  Age: 71 Year
  Sex: Male
  Weight: 60 kg

DRUGS (5)
  1. BELANTAMAB MAFODOTIN [Suspect]
     Active Substance: BELANTAMAB MAFODOTIN
     Indication: Plasma cell myeloma
     Dosage: 2.5 MG/KG, CYC
     Route: 042
     Dates: start: 20200916
  2. BACTRIM [Concomitant]
     Active Substance: SULFAMETHOXAZOLE\TRIMETHOPRIM
     Dosage: 1 DF 3D
     Dates: start: 2019
  3. VALACYCLOVIR HYDROCHLORIDE [Concomitant]
     Active Substance: VALACYCLOVIR HYDROCHLORIDE
     Dosage: 500 MG, BID
     Dates: start: 2019
  4. PENICILLIN V [Concomitant]
     Active Substance: PENICILLIN V
     Dosage: 1 MUX2D
     Dates: start: 2019
  5. FENTANYL [Concomitant]
     Active Substance: FENTANYL
     Dosage: 100 UG/HR
     Dates: start: 2019

REACTIONS (8)
  - Sepsis [Fatal]
  - Neuralgia [Recovered/Resolved]
  - Hypercalcaemia [Recovered/Resolved]
  - Thrombocytopenia [Recovered/Resolved]
  - Keratopathy [Unknown]
  - Diarrhoea [Recovered/Resolved]
  - Keratitis [Recovering/Resolving]
  - Inappropriate schedule of product administration [Unknown]

NARRATIVE: CASE EVENT DATE: 20200923
